FAERS Safety Report 7965835 (Version 4)
Quarter: 2020Q4

REPORT INFORMATION
  Report Type: Report from Study
  Country: ES (occurrence: ES)
  Receive Date: 20110530
  Receipt Date: 20201116
  Transmission Date: 20210114
  Serious: Yes (Hospitalization)
  Sender: FDA-Public Use
  Company Number: ES-AMGEN-ESPCT2011024788

PATIENT
  Age: 68 Year
  Sex: Female

DRUGS (5)
  1. EUTIROX [Concomitant]
     Active Substance: LEVOTHYROXINE SODIUM
     Dosage: 50 MUG, QD
     Dates: start: 2004
  2. 5-FU [Suspect]
     Active Substance: FLUOROURACIL
     Indication: ANAL SQUAMOUS CELL CARCINOMA
     Dosage: 1000 MG/M2, Q4WK
     Route: 042
     Dates: start: 20110404, end: 20110502
  3. MITOMICINA C [Suspect]
     Active Substance: MITOMYCIN
     Indication: ANAL SQUAMOUS CELL CARCINOMA
     Dosage: 10 MG/M2, Q4WK
     Route: 042
     Dates: start: 20110404, end: 20110502
  4. PANITUMUMAB [Suspect]
     Active Substance: PANITUMUMAB
     Indication: ANAL SQUAMOUS CELL CARCINOMA
     Dosage: 6 MG/KG, Q2WK
     Route: 042
     Dates: start: 20110404, end: 20110502
  5. DIAZEPAM. [Concomitant]
     Active Substance: DIAZEPAM
     Dosage: 5 MG, QD

REACTIONS (4)
  - Dermatitis [Recovered/Resolved]
  - Neutropenia [Recovered/Resolved]
  - Asthenia [Recovered/Resolved]
  - Colitis [Recovering/Resolving]

NARRATIVE: CASE EVENT DATE: 20110414
